FAERS Safety Report 10832688 (Version 1)
Quarter: 2015Q1

REPORT INFORMATION
  Report Type: Report from Study
  Country: US (occurrence: US)
  Receive Date: 20150219
  Receipt Date: 20150219
  Transmission Date: 20150721
  Serious: No
  Sender: FDA-Public Use
  Company Number: US-ABBVIE-14P-163-1196309-00

PATIENT
  Age: 55 Year
  Sex: Male

DRUGS (5)
  1. COLSOPT [Concomitant]
     Indication: GLAUCOMA
     Dosage: EYE DROPS, 1 DROP EACH TO BOTH EYES
  2. MERCAPTOPURINE. [Concomitant]
     Active Substance: MERCAPTOPURINE
     Indication: COLITIS ULCERATIVE
  3. ALPHAGAN P [Concomitant]
     Active Substance: BRIMONIDINE TARTRATE
     Indication: GLAUCOMA
     Dosage: EYE DROPS, 1 DROP OF EACH TO BOTH EYES
  4. ZALATAN [Concomitant]
     Indication: GLAUCOMA
     Dosage: EYE DROPS, ONE DROP EACH EYE AT NIGHT
  5. HUMIRA [Suspect]
     Active Substance: ADALIMUMAB
     Indication: COLITIS ULCERATIVE
     Dates: start: 20131218

REACTIONS (2)
  - Injection site haemorrhage [Recovered/Resolved]
  - Wrong technique in drug usage process [Unknown]

NARRATIVE: CASE EVENT DATE: 20140129
